FAERS Safety Report 6246774-9 (Version None)
Quarter: 2009Q2

REPORT INFORMATION
  Report Type: 
  Country: None (occurrence: None)
  Receive Date: 20090624
  Receipt Date: 20090624
  Transmission Date: 20091009
  Serious: Yes (Other)
  Sender: FDA-Public Use
  Company Number: None

PATIENT
  Age: 35 Year
  Sex: Female
  Weight: 72.5755 kg

DRUGS (1)
  1. CERTAIN DRI PRESCRIPTION STRENGHT A.I ALUMINUM CHLORIDE [Suspect]
     Indication: HYPERHIDROSIS
     Dates: start: 20070619, end: 20090507

REACTIONS (2)
  - BREAST CYST [None]
  - CONDITION AGGRAVATED [None]
